FAERS Safety Report 8425512-5 (Version None)
Quarter: 2012Q2

REPORT INFORMATION
  Report Type: 
  Country: None (occurrence: None)
  Receive Date: 20120611
  Receipt Date: 20120531
  Transmission Date: 20120825
  Serious: Yes (Hospitalization, Other)
  Sender: FDA-Public Use
  Company Number: JP-CELGENEUS-087-50794-12040420

PATIENT
  Sex: Female
  Weight: 38 kg

DRUGS (13)
  1. ITRACONAZOLE [Concomitant]
     Route: 065
  2. OMEPRAZOLE [Concomitant]
     Route: 065
     Dates: end: 20110410
  3. PREDNISOLONE [Concomitant]
     Route: 065
  4. VFEND [Concomitant]
     Route: 065
     Dates: end: 20111104
  5. COTRIM [Concomitant]
     Route: 065
  6. FUNGUARD [Concomitant]
     Route: 065
     Dates: start: 20111119
  7. VIDAZA [Suspect]
     Dosage: 75 MILLIGRAM/SQ. METER
     Route: 041
     Dates: start: 20110510, end: 20110516
  8. VIDAZA [Suspect]
     Dosage: 75 MILLIGRAM/SQ. METER
     Route: 041
     Dates: start: 20110413, end: 20110419
  9. VIDAZA [Suspect]
     Dosage: 75 MILLIGRAM/SQ. METER
     Route: 041
     Dates: start: 20111117, end: 20111123
  10. PAZUCROSS [Concomitant]
     Route: 065
     Dates: start: 20111119
  11. VIDAZA [Suspect]
     Dosage: 75 MILLIGRAM/SQ. METER
     Route: 041
     Dates: start: 20111027, end: 20111102
  12. TEICOPLANIN [Concomitant]
     Route: 065
     Dates: end: 20111104
  13. METFORMIN HCL [Concomitant]
     Route: 065
     Dates: end: 20111104

REACTIONS (3)
  - PNEUMONIA [None]
  - RENAL IMPAIRMENT [None]
  - BILIRUBIN CONJUGATED INCREASED [None]
